FAERS Safety Report 6759980-1 (Version None)
Quarter: 2010Q2

REPORT INFORMATION
  Report Type: 
  Country: None (occurrence: None)
  Receive Date: 20100604
  Receipt Date: 20100520
  Transmission Date: 20101027
  Serious: Yes (Other)
  Sender: FDA-Public Use
  Company Number: CIO10007192

PATIENT
  Age: 42 Year
  Sex: Male

DRUGS (1)
  1. NYQUIL COLD/FLU ALCOHOL 10% PSEUDOEPHEDRINE FREE, ORIGINAL FLAVOR (PAR [Suspect]
     Dosage: UNK DOSE, 1 /DAY FOR 1 DAY ORAL
     Route: 048
     Dates: start: 20100520, end: 20100520

REACTIONS (4)
  - CONVULSION [None]
  - HEART RATE IRREGULAR [None]
  - LOSS OF CONSCIOUSNESS [None]
  - VENTRICULAR TACHYCARDIA [None]
